FAERS Safety Report 10178213 (Version 2)
Quarter: 2014Q2

REPORT INFORMATION
  Report Type: Spontaneous
  Country: DE (occurrence: DE)
  Receive Date: 20140519
  Receipt Date: 20140529
  Transmission Date: 20141212
  Serious: Yes (Other)
  Sender: FDA-Public Use
  Company Number: DE-AMGEN-DEUSP2014035143

PATIENT
  Age: 76 Year
  Sex: Female

DRUGS (6)
  1. PROLIA [Suspect]
     Indication: PRODUCT USED FOR UNKNOWN INDICATION
     Dosage: 60 MG, UNK
     Route: 065
     Dates: start: 2011, end: 2013
  2. METEX                              /00082702/ [Concomitant]
  3. DICLAC                             /00372302/ [Concomitant]
  4. FOSTER                             /00500401/ [Concomitant]
  5. MAGNESIUM [Concomitant]
  6. GINGIUM [Concomitant]

REACTIONS (2)
  - Bone loss [Not Recovered/Not Resolved]
  - Osteonecrosis of jaw [Unknown]
